FAERS Safety Report 14561121 (Version 1)
Quarter: 2018Q1

REPORT INFORMATION
  Report Type: Report from Study
  Country: NL (occurrence: NL)
  Receive Date: 20180222
  Receipt Date: 20180222
  Transmission Date: 20180509
  Serious: Yes (Death, Other)
  Sender: FDA-Public Use
  Company Number: NL-AEGERION PHARMACEUTICAL, INC-AEGR003643

PATIENT

DRUGS (1)
  1. MYALEPT [Suspect]
     Active Substance: METRELEPTIN
     Indication: PRODUCT USED FOR UNKNOWN INDICATION

REACTIONS (5)
  - Metastases to central nervous system [Unknown]
  - Malaise [Unknown]
  - Cerebral haemorrhage [Fatal]
  - Malignant neoplasm of unknown primary site [Unknown]
  - Mydriasis [Unknown]

NARRATIVE: CASE EVENT DATE: 201712
